FAERS Safety Report 10672643 (Version 1)
Quarter: 2014Q4

REPORT INFORMATION
  Report Type: Spontaneous
  Country: US (occurrence: US)
  Receive Date: 20141223
  Receipt Date: 20141223
  Transmission Date: 20150529
  Serious: No
  Sender: FDA-Public Use
  Company Number: US-GLAXOSMITHKLINE-US2014GSK038265

PATIENT
  Age: 52 Year
  Sex: Female

DRUGS (2)
  1. DULERA [Concomitant]
     Active Substance: FORMOTEROL FUMARATE DIHYDRATE\MOMETASONE FUROATE
  2. VENTOLIN HFA [Suspect]
     Active Substance: ALBUTEROL SULFATE
     Indication: ASTHMA
     Dosage: 2 PUFF(S), 2-3 TIMES/DAY
     Route: 055
     Dates: start: 201404

REACTIONS (3)
  - Asthma [Recovered/Resolved]
  - Ligament sprain [Unknown]
  - Medication error [Unknown]

NARRATIVE: CASE EVENT DATE: 20141009
